FAERS Safety Report 8079928-X (Version None)
Quarter: 2012Q1

REPORT INFORMATION
  Report Type: 
  Country: None (occurrence: None)
  Receive Date: 20120128
  Receipt Date: 20110806
  Transmission Date: 20120608
  Serious: No
  Sender: FDA-Public Use
  Company Number: US-ABBOTT-11P-163-0841170-00

PATIENT
  Sex: Female
  Weight: 69.916 kg

DRUGS (13)
  1. HUMIRA [Suspect]
     Indication: CROHN'S DISEASE
     Dosage: (160 MG, LOADING DOSE)
     Dates: start: 20110628, end: 20110628
  2. HUMIRA [Suspect]
  3. ASACOL [Concomitant]
     Indication: CROHN'S DISEASE
  4. VITAMIN D [Concomitant]
     Indication: PRODUCT USED FOR UNKNOWN INDICATION
  5. MERCAPTOPURINE [Concomitant]
     Indication: CROHN'S DISEASE
  6. PREDNISONE TAB [Concomitant]
     Indication: CROHN'S DISEASE
     Dates: end: 20110718
  7. HUMIRA [Suspect]
     Dosage: (80 MG, SECOND LOADING DOSE)
     Route: 058
     Dates: start: 20110713, end: 20110713
  8. MULTI-VITAMIN [Concomitant]
     Indication: PRODUCT USED FOR UNKNOWN INDICATION
  9. IMODIUM [Concomitant]
     Indication: PRODUCT USED FOR UNKNOWN INDICATION
  10. LYRICA [Concomitant]
     Indication: NECK PAIN
  11. NUVARING [Concomitant]
     Indication: PRODUCT USED FOR UNKNOWN INDICATION
  12. ACETAMINOPHEN [Concomitant]
     Indication: PRODUCT USED FOR UNKNOWN INDICATION
  13. CANASA [Concomitant]
     Indication: CROHN'S DISEASE
     Route: 054

REACTIONS (8)
  - RECTAL HAEMORRHAGE [None]
  - INJECTION SITE ERYTHEMA [None]
  - WRONG TECHNIQUE IN DRUG USAGE PROCESS [None]
  - INJECTION SITE WARMTH [None]
  - DEVICE MALFUNCTION [None]
  - ABDOMINAL DISCOMFORT [None]
  - CROHN'S DISEASE [None]
  - FREQUENT BOWEL MOVEMENTS [None]
